FAERS Safety Report 11852233 (Version 3)
Quarter: 2016Q1

REPORT INFORMATION
  Report Type: Spontaneous
  Country: None (occurrence: US)
  Receive Date: 20151218
  Receipt Date: 20160226
  Transmission Date: 20160526
  Serious: Yes (Other)
  Sender: FDA-Public Use
  Company Number: US-MEDTRONIC-1045656

PATIENT
  Age: 9 Year
  Sex: Male

DRUGS (2)
  1. COMPOUNDED BACLOFEN [Suspect]
     Active Substance: BACLOFEN
     Route: 037
  2. LIORESAL [Suspect]
     Active Substance: BACLOFEN
     Indication: MUSCLE SPASTICITY
     Route: 037

REACTIONS (9)
  - Red blood cell sedimentation rate increased [Unknown]
  - Purulent discharge [Recovered/Resolved]
  - Skin disorder [Unknown]
  - Incision site erythema [Recovered/Resolved]
  - Medical device site erythema [Recovered/Resolved]
  - Medical device site swelling [Recovered/Resolved]
  - Medical device site discharge [Recovered/Resolved]
  - Medical device site inflammation [Recovered/Resolved]
  - Medical device site infection [Recovered/Resolved]

NARRATIVE: CASE EVENT DATE: 2015
